FAERS Safety Report 12404861 (Version 3)
Quarter: 2016Q3

REPORT INFORMATION
  Report Type: Spontaneous
  Country: US (occurrence: US)
  Receive Date: 20160525
  Receipt Date: 20160909
  Transmission Date: 20161109
  Serious: Yes (Death, Other)
  Sender: FDA-Public Use
  Company Number: US-JNJFOC-20160522239

PATIENT
  Age: 85 Year
  Sex: Male

DRUGS (1)
  1. XARELTO [Suspect]
     Active Substance: RIVAROXABAN
     Indication: PRODUCT USED FOR UNKNOWN INDICATION
     Route: 048
     Dates: start: 201405, end: 201407

REACTIONS (2)
  - Internal haemorrhage [Unknown]
  - Cerebrovascular accident [Fatal]

NARRATIVE: CASE EVENT DATE: 201407
